FAERS Safety Report 21198397 (Version 1)
Quarter: 2022Q3

REPORT INFORMATION
  Report Type: Spontaneous
  Country: US (occurrence: US)
  Receive Date: 20220811
  Receipt Date: 20220811
  Transmission Date: 20221027
  Serious: No
  Sender: FDA-Public Use
  Company Number: US-BRISTOL-MYERS SQUIBB COMPANY-2022-088267

PATIENT
  Age: 84 Year
  Sex: Male
  Weight: 100.7 kg

DRUGS (5)
  1. REVLIMID [Suspect]
     Active Substance: LENALIDOMIDE
     Indication: Plasma cell myeloma
     Route: 048
     Dates: start: 20220803, end: 20220808
  2. HYDRALAZINE DC [Concomitant]
     Indication: Product used for unknown indication
     Route: 065
  3. AMLODIPINE OHARA [Concomitant]
     Indication: Product used for unknown indication
     Route: 065
  4. OTANOL [CALCITRIOL] [Concomitant]
     Indication: Product used for unknown indication
     Route: 065
  5. URAL [SODIUM BICARBONATE] [Concomitant]
     Indication: Product used for unknown indication
     Route: 065

REACTIONS (4)
  - Pain [Unknown]
  - Back pain [Unknown]
  - Dyspepsia [Unknown]
  - Ageusia [Unknown]

NARRATIVE: CASE EVENT DATE: 20220808
